FAERS Safety Report 11177550 (Version 2)
Quarter: 2015Q3

REPORT INFORMATION
  Report Type: Spontaneous
  Country: US (occurrence: US)
  Receive Date: 20150610
  Receipt Date: 20150701
  Transmission Date: 20151125
  Serious: Yes (Hospitalization)
  Sender: FDA-Public Use
  Company Number: US-PFIZER INC-2015190830

PATIENT
  Age: 63 Year
  Sex: Female
  Weight: 66 kg

DRUGS (5)
  1. LYRICA [Suspect]
     Active Substance: PREGABALIN
     Indication: FIBROMYALGIA
  2. AMITRIPTYLINE [Concomitant]
     Active Substance: AMITRIPTYLINE
     Dosage: UNK
  3. LYRICA [Suspect]
     Active Substance: PREGABALIN
     Indication: DIABETIC NEUROPATHY
     Dosage: UNK, 2X/DAY
     Route: 048
  4. CYMBALTA [Concomitant]
     Active Substance: DULOXETINE HYDROCHLORIDE
     Dosage: UNK
  5. TRAZODONE [Concomitant]
     Active Substance: TRAZODONE HYDROCHLORIDE
     Dosage: UNK

REACTIONS (4)
  - Foot fracture [Unknown]
  - Laceration [Unknown]
  - Blood pressure abnormal [Unknown]
  - Fall [Unknown]
